FAERS Safety Report 7509295-9 (Version None)
Quarter: 2011Q2

REPORT INFORMATION
  Report Type: 
  Country: None (occurrence: None)
  Receive Date: 20110527
  Receipt Date: 20110522
  Transmission Date: 20111010
  Serious: Yes (Hospitalization)
  Sender: FDA-Public Use
  Company Number: BR-ROCHE-778577

PATIENT
  Sex: Male

DRUGS (5)
  1. VALSARTAN [Concomitant]
     Indication: HYPERTENSION
  2. ATENOLOL [Concomitant]
     Indication: HYPERTENSION
  3. WARFARIN SODIUM [Concomitant]
     Indication: HYPERTENSION
  4. CLONAZEPAM [Suspect]
     Indication: INSOMNIA
     Dosage: INTERRUPTED
     Route: 065
  5. ALDACTONE [Concomitant]
     Indication: HYPERTENSION

REACTIONS (2)
  - CARDIAC DISORDER [None]
  - INSOMNIA [None]
